FAERS Safety Report 7521921-7 (Version None)
Quarter: 2011Q2

REPORT INFORMATION
  Report Type: 
  Country: None (occurrence: None)
  Receive Date: 20110603
  Receipt Date: 20110520
  Transmission Date: 20111010
  Serious: Yes (Hospitalization)
  Sender: FDA-Public Use
  Company Number: US-ELI_LILLY_AND_COMPANY-US200909005987

PATIENT
  Sex: Female
  Weight: 68.027 kg

DRUGS (17)
  1. FERROUS SULFATE TAB [Concomitant]
  2. ASPIRIN [Concomitant]
  3. NIACINAMIDE [Concomitant]
  4. FISH OIL [Concomitant]
  5. FORTEO [Suspect]
     Dosage: 20 UG, QD
     Route: 058
     Dates: start: 20110504
  6. MULTI-VITAMIN [Concomitant]
  7. CALCIUM CARBONATE [Concomitant]
  8. FORTEO [Suspect]
     Indication: OSTEOPOROSIS
     Dosage: 20 UG, DAILY (1/D)
     Route: 058
     Dates: start: 20090616
  9. FORTEO [Suspect]
     Dosage: 20 UG, DAILY (1/D)
     Route: 058
     Dates: start: 20110202
  10. FORTEO [Suspect]
     Dosage: 20 UG, QD
     Route: 058
     Dates: start: 20110301, end: 20110418
  11. DIOVAN [Concomitant]
  12. FORTEO [Suspect]
     Dosage: 20 UG, QD
     Route: 058
     Dates: start: 20110504
  13. COUMADIN [Concomitant]
  14. VERAPAMIL [Concomitant]
  15. POTASSIUM CHLORIDE [Concomitant]
  16. VITAMIN D [Concomitant]
  17. FORTEO [Suspect]
     Dosage: 20 UG, QD

REACTIONS (5)
  - APPENDICITIS [None]
  - INJECTION SITE ERYTHEMA [None]
  - INJECTION SITE PRURITUS [None]
  - BLOOD CALCIUM INCREASED [None]
  - INJECTION SITE HAEMORRHAGE [None]
